FAERS Safety Report 8798127 (Version 1)
Quarter: 2012Q4

REPORT INFORMATION
  Report Type: Spontaneous
  Country: US (occurrence: None)
  Receive Date: 20120913
  Receipt Date: 20120913
  Transmission Date: 20130627
  Serious: Yes (Death)
  Sender: FDA-Public Use
  Company Number: 1713747-2012-00002

PATIENT
  Age: 67 Year
  Sex: Male
  Weight: 129.28 kg

DRUGS (7)
  1. DELFLEX WITH DEXTROSE 1.5% [Suspect]
     Indication: RENAL FAILURE
  2. DELFLEX 2.5% [Concomitant]
  3. DELFLEX 4.25% DEX [Concomitant]
  4. FRESENIUS LIBERTY CYCLER, LIBERTY CYCLER SET [Concomitant]
  5. . [Concomitant]
  6. ALLEGRA 180MG [Concomitant]
  7. ASA 81 MG [Concomitant]

REACTIONS (2)
  - Sudden death [None]
  - Respiratory arrest [None]
